FAERS Safety Report 8974681 (Version 1)
Quarter: 2012Q4

REPORT INFORMATION
  Report Type: 
  Country: TW (occurrence: TW)
  Receive Date: 20121219
  Receipt Date: 20121219
  Transmission Date: 20130627
  Serious: Yes (Hospitalization)
  Sender: FDA-Public Use
  Company Number: TW-MYLANLABS-2012S1025381

PATIENT
  Age: 60 Year
  Sex: Male

DRUGS (8)
  1. FAMOTIDINE [Suspect]
     Indication: PEPTIC ULCER
     Route: 048
  2. ASPIRIN [Concomitant]
     Route: 065
  3. LABETALOL [Concomitant]
     Route: 065
  4. NIFEDIPINE [Concomitant]
     Route: 065
  5. TERAZOSIN [Concomitant]
     Route: 065
  6. METFORMIN [Concomitant]
     Route: 065
  7. GLIMEPIRIDE [Concomitant]
     Route: 065
  8. ACARBOSE [Concomitant]
     Route: 065

REACTIONS (2)
  - Eosinophilia [Recovered/Resolved]
  - Cerebral infarction [Recovered/Resolved with Sequelae]
